FAERS Safety Report 7351264-6 (Version None)
Quarter: 2011Q1

REPORT INFORMATION
  Report Type: 
  Country: None (occurrence: None)
  Receive Date: 20110314
  Receipt Date: 20110302
  Transmission Date: 20110831
  Serious: Yes (Other)
  Sender: FDA-Public Use
  Company Number: US-BAYER-201029667GPV

PATIENT
  Age: 48 Year
  Sex: Male

DRUGS (8)
  1. VANCOMYCIN [Concomitant]
     Indication: INTESTINAL PERFORATION
  2. PIPERACILLIN AND TAZOBACTAM [Concomitant]
     Indication: INTESTINAL PERFORATION
  3. ACETAMINOPHEN [Suspect]
     Indication: PYREXIA
  4. ATORVASTATIN [Concomitant]
     Indication: PRODUCT USED FOR UNKNOWN INDICATION
  5. ACETAMINOPHEN [Suspect]
     Indication: MYALGIA
  6. IRON [Concomitant]
     Indication: DRUG RASH WITH EOSINOPHILIA AND SYSTEMIC SYMPTOMS
  7. PANTOPRAZOLE [Concomitant]
     Indication: PRODUCT USED FOR UNKNOWN INDICATION
  8. MULTI-VITAMIN [Concomitant]
     Indication: PRODUCT USED FOR UNKNOWN INDICATION

REACTIONS (3)
  - HEPATIC ENZYME INCREASED [None]
  - DRUG RASH WITH EOSINOPHILIA AND SYSTEMIC SYMPTOMS [None]
  - DERMATITIS EXFOLIATIVE [None]
